FAERS Safety Report 5081658-3 (Version None)
Quarter: 2006Q3

REPORT INFORMATION
  Report Type: 
  Country: None (occurrence: None)
  Receive Date: 20060811
  Receipt Date: 20060731
  Transmission Date: 20061208
  Serious: Yes (Hospitalization)
  Sender: FDA-Public Use
  Company Number: B0433419A

PATIENT
  Age: 70 Year
  Sex: Female

DRUGS (1)
  1. FORTAZ [Suspect]
     Indication: PERITONITIS
     Dosage: SEE DOSAGE TEXT

REACTIONS (9)
  - ACCIDENTAL OVERDOSE [None]
  - ASTERIXIS [None]
  - BLOOD CREATININE INCREASED [None]
  - DEPRESSED LEVEL OF CONSCIOUSNESS [None]
  - HAEMODIALYSIS [None]
  - LACUNAR INFARCTION [None]
  - MUTISM [None]
  - NYSTAGMUS [None]
  - STATUS EPILEPTICUS [None]
